FAERS Safety Report 5465042-6 (Version None)
Quarter: 2007Q3

REPORT INFORMATION
  Report Type: 
  Country: None (occurrence: None)
  Receive Date: 20070820
  Receipt Date: 20070430
  Transmission Date: 20080115
  Serious: No
  Sender: FDA-Public Use
  Company Number: TPA2007A00930

PATIENT
  Age: 47 Year
  Sex: Female
  Weight: 65.7716 kg

DRUGS (3)
  1. ROZEREM [Suspect]
     Indication: INSOMNIA
     Dosage: 8 MG,  HS, PER ORAL
     Route: 048
     Dates: start: 20070427
  2. TRIAMTERENE (TRIAMTERENE) [Concomitant]
  3. FOSAMAX [Concomitant]

REACTIONS (4)
  - INITIAL INSOMNIA [None]
  - INSOMNIA [None]
  - MIDDLE INSOMNIA [None]
  - POOR QUALITY SLEEP [None]
